FAERS Safety Report 13697092 (Version 2)
Quarter: 2017Q3

REPORT INFORMATION
  Report Type: Other
  Country: PL (occurrence: PL)
  Receive Date: 20170628
  Receipt Date: 20170703
  Transmission Date: 20171127
  Serious: Yes (Other)
  Sender: FDA-Public Use
  Company Number: PL-DEXPHARM-20170946

PATIENT
  Sex: Male

DRUGS (2)
  1. OMEPRAZOLE. [Suspect]
     Active Substance: OMEPRAZOLE
     Indication: PROPHYLAXIS AGAINST GASTROINTESTINAL ULCER
     Route: 042
  2. VORICONAZOLE. [Interacting]
     Active Substance: VORICONAZOLE
     Route: 042

REACTIONS (4)
  - Nephritis [Unknown]
  - Haematuria [Unknown]
  - Nausea [Unknown]
  - Pneumonia [Unknown]
